FAERS Safety Report 7522382-4 (Version None)
Quarter: 2011Q2

REPORT INFORMATION
  Report Type: 
  Country: None (occurrence: None)
  Receive Date: 20110603
  Receipt Date: 20110520
  Transmission Date: 20111010
  Serious: Yes (Other)
  Sender: FDA-Public Use
  Company Number: IE-ELI_LILLY_AND_COMPANY-IE201104003392

PATIENT
  Sex: Female

DRUGS (4)
  1. ABILIFY [Concomitant]
     Indication: PARANOIA
     Dosage: 10 MG, QD
     Route: 048
     Dates: start: 20070101
  2. CYMBALTA [Suspect]
     Indication: DEPRESSION
     Dosage: 120 MG, EACH MORNING
     Route: 048
     Dates: start: 20060101
  3. ABILIFY [Concomitant]
     Dosage: 5 MG, QD
  4. MIRTAZAPINE [Concomitant]
     Indication: DEPRESSION
     Dosage: 30 MG, EACH EVENING
     Dates: start: 20080101

REACTIONS (1)
  - PARKINSONISM [None]
